FAERS Safety Report 18353170 (Version 1)
Quarter: 2020Q4

REPORT INFORMATION
  Report Type: Spontaneous
  Country: US (occurrence: US)
  Receive Date: 20201006
  Receipt Date: 20201006
  Transmission Date: 20210114
  Serious: No
  Sender: FDA-Public Use
  Company Number: US-ALLERGAN-2027762US

PATIENT
  Sex: Female

DRUGS (2)
  1. LINZESS [Suspect]
     Active Substance: LINACLOTIDE
     Indication: CONSTIPATION
     Dosage: 72 ?G, QD
     Route: 048
     Dates: end: 202002
  2. LINZESS [Suspect]
     Active Substance: LINACLOTIDE
     Indication: ABDOMINAL PAIN

REACTIONS (8)
  - Back pain [Unknown]
  - Constipation [Recovered/Resolved]
  - Arthralgia [Unknown]
  - Faeces hard [Recovered/Resolved]
  - Drug ineffective [Unknown]
  - Abdominal pain [Recovered/Resolved]
  - Off label use [Unknown]
  - Abdominal distension [Unknown]
